FAERS Safety Report 20416315 (Version 1)
Quarter: 2022Q1

REPORT INFORMATION
  Report Type: Spontaneous
  Country: US (occurrence: None)
  Receive Date: 20220202
  Receipt Date: 20220202
  Transmission Date: 20220423
  Serious: Yes (Hospitalization)
  Sender: FDA-Public Use
  Company Number: None

PATIENT
  Age: 21 Year
  Sex: Male
  Weight: 52.16 kg

DRUGS (2)
  1. METHOTREXATE [Suspect]
     Active Substance: METHOTREXATE
     Dates: end: 20220114
  2. VINCRISTIE SULFATE [Concomitant]
     Dates: end: 20220114

REACTIONS (1)
  - Leukoencephalopathy [None]

NARRATIVE: CASE EVENT DATE: 20220130
